FAERS Safety Report 17950513 (Version 3)
Quarter: 2020Q3

REPORT INFORMATION
  Report Type: Report from Study
  Country: US (occurrence: US)
  Receive Date: 20200626
  Receipt Date: 20200805
  Transmission Date: 20201103
  Serious: Yes (Hospitalization, Other)
  Sender: FDA-Public Use
  Company Number: US-AGIOS-2006US01998

PATIENT

DRUGS (2)
  1. DIGOXIN. [Concomitant]
     Active Substance: DIGOXIN
     Route: 048
  2. TIBSOVO [Suspect]
     Active Substance: IVOSIDENIB
     Indication: CHOLANGIOCARCINOMA
     Dosage: 250MG, 2 TABLETS (500MG) DAILY
     Route: 048
     Dates: start: 20200509, end: 20200608

REACTIONS (8)
  - Acute kidney injury [Unknown]
  - Hyperkalaemia [Unknown]
  - Bradycardia [Recovered/Resolved]
  - Toxicity to various agents [Unknown]
  - Diarrhoea [Unknown]
  - Acute left ventricular failure [Recovered/Resolved]
  - Off label use [Recovered/Resolved]
  - Hyponatraemia [Unknown]

NARRATIVE: CASE EVENT DATE: 20200509
